FAERS Safety Report 13384799 (Version 1)
Quarter: 2017Q1

REPORT INFORMATION
  Report Type: Spontaneous
  Country: US (occurrence: US)
  Receive Date: 20170329
  Receipt Date: 20170329
  Transmission Date: 20170429
  Serious: Yes (Hospitalization)
  Sender: FDA-Public Use
  Company Number: US-ACTELION-A-US2017-151620

PATIENT
  Age: 75 Year
  Sex: Female

DRUGS (6)
  1. ASPIRIN. [Concomitant]
     Active Substance: ASPIRIN
     Dosage: 81 MG, UNK
  2. TRACLEER [Suspect]
     Active Substance: BOSENTAN
     Indication: PULMONARY ARTERIAL HYPERTENSION
     Dosage: 125 MG, BID
     Route: 048
  3. SILDENAFIL CITRATE. [Concomitant]
     Active Substance: SILDENAFIL CITRATE
  4. METOPROLOL. [Concomitant]
     Active Substance: METOPROLOL
     Dosage: 62.5 MG, BID
     Dates: start: 20170302
  5. AMLODIPINE [Concomitant]
     Active Substance: AMLODIPINE BESYLATE
  6. PLAVIX [Concomitant]
     Active Substance: CLOPIDOGREL BISULFATE
     Dosage: 75 MG, QD
     Dates: start: 20170302

REACTIONS (4)
  - Cardiac failure acute [Unknown]
  - Pulmonary hypertension [Unknown]
  - Ischaemic cardiomyopathy [Unknown]
  - Cor pulmonale [Unknown]

NARRATIVE: CASE EVENT DATE: 20170224
